FAERS Safety Report 21959924 (Version 1)
Quarter: 2023Q1

REPORT INFORMATION
  Report Type: Spontaneous
  Country: JP (occurrence: JP)
  Receive Date: 20230206
  Receipt Date: 20230206
  Transmission Date: 20230417
  Serious: Yes (Death, Hospitalization)
  Sender: FDA-Public Use
  Company Number: JP-STRIDES ARCOLAB LIMITED-2023SP001646

PATIENT
  Age: 62 Year
  Sex: Female

DRUGS (12)
  1. ETOPOSIDE [Suspect]
     Active Substance: ETOPOSIDE
     Indication: Adult T-cell lymphoma/leukaemia
     Dosage: UNK; VECP REGIMEN
     Route: 065
  2. DOXORUBICIN [Suspect]
     Active Substance: DOXORUBICIN
     Indication: Adult T-cell lymphoma/leukaemia
     Dosage: UNK; VCAP REGIMEN
     Route: 065
  3. DOXORUBICIN [Suspect]
     Active Substance: DOXORUBICIN
     Dosage: UNK; AMP REGIMEN
     Route: 065
  4. PREDNISOLONE [Suspect]
     Active Substance: PREDNISOLONE
     Indication: Adult T-cell lymphoma/leukaemia
     Dosage: UNK; VCAP REGIMEN
     Route: 065
  5. PREDNISOLONE [Suspect]
     Active Substance: PREDNISOLONE
     Dosage: UNK; AMP REGIMEN
     Route: 065
  6. PREDNISOLONE [Suspect]
     Active Substance: PREDNISOLONE
     Dosage: UNK; VECP REGIMEN
     Route: 065
  7. CARBOPLATIN [Suspect]
     Active Substance: CARBOPLATIN
     Indication: Adult T-cell lymphoma/leukaemia
     Dosage: UNK; VECP REGIMEN
     Route: 065
  8. MOGAMULIZUMAB [Suspect]
     Active Substance: MOGAMULIZUMAB
     Indication: Adult T-cell lymphoma/leukaemia
     Dosage: UNK; FIVE SESSIONS OF MLSG-15 THERAPY
     Route: 065
  9. VINCRISTINE [Suspect]
     Active Substance: VINCRISTINE
     Indication: Adult T-cell lymphoma/leukaemia
     Dosage: UNK; VCAP REGIMEN
     Route: 065
  10. CYCLOPHOSPHAMIDE [Suspect]
     Active Substance: CYCLOPHOSPHAMIDE
     Indication: Adult T-cell lymphoma/leukaemia
     Dosage: UNK; VCAP REGIMEN
     Route: 065
  11. RANIMUSTINE [Suspect]
     Active Substance: RANIMUSTINE
     Indication: Adult T-cell lymphoma/leukaemia
     Dosage: UNK; AMP REGIMEN
     Route: 065
  12. VINDESINE [Suspect]
     Active Substance: VINDESINE
     Indication: Adult T-cell lymphoma/leukaemia
     Dosage: UNK; VECP REGIMEN
     Route: 065

REACTIONS (3)
  - Myeloid leukaemia [Fatal]
  - Disease complication [Fatal]
  - Encephalomyelitis viral [Fatal]
